FAERS Safety Report 20384265 (Version 1)
Quarter: 2022Q1

REPORT INFORMATION
  Report Type: Spontaneous
  Country: US (occurrence: US)
  Receive Date: 20220127
  Receipt Date: 20220127
  Transmission Date: 20220423
  Serious: No
  Sender: FDA-Public Use
  Company Number: US-ALLERGAN-2111873US

PATIENT
  Age: 70 Year
  Sex: Female

DRUGS (3)
  1. BOTOX COSMETIC [Suspect]
     Active Substance: ONABOTULINUMTOXINA
     Indication: Skin wrinkling
     Dosage: 30 UNITS, SINGLE
     Dates: start: 202006, end: 202006
  2. unspecified inhailer [Concomitant]
     Indication: Asthma
     Dosage: UNK
  3. unspecifed multi-vitamins [Concomitant]
     Dosage: UNK

REACTIONS (5)
  - Off label use [Unknown]
  - Muscle tightness [Not Recovered/Not Resolved]
  - Skin indentation [Not Recovered/Not Resolved]
  - Rash [Not Recovered/Not Resolved]
  - Skin tightness [Not Recovered/Not Resolved]
